FAERS Safety Report 11020834 (Version 2)
Quarter: 2015Q2

REPORT INFORMATION
  Report Type: Spontaneous
  Country: JP (occurrence: JP)
  Receive Date: 20150413
  Receipt Date: 20150511
  Transmission Date: 20150821
  Serious: Yes (Life-Threatening, Hospitalization, Other)
  Sender: FDA-Public Use
  Company Number: JP-BAYER-2015-033545

PATIENT
  Age: 23 Year
  Sex: Female
  Weight: 52 kg

DRUGS (1)
  1. YAZ [Suspect]
     Active Substance: DROSPIRENONE\ETHINYL ESTRADIOL
     Indication: DYSMENORRHOEA
     Dosage: 1 DF, QD
     Route: 048

REACTIONS (20)
  - Abdominal pain [Recovered/Resolved with Sequelae]
  - Constipation [Recovered/Resolved with Sequelae]
  - Peroneal nerve palsy [None]
  - Diarrhoea [Recovered/Resolved with Sequelae]
  - Portal venous gas [Recovered/Resolved with Sequelae]
  - Stress cardiomyopathy [Recovered/Resolved with Sequelae]
  - Colitis ischaemic [Recovered/Resolved with Sequelae]
  - Ascites [Recovered/Resolved with Sequelae]
  - Disseminated intravascular coagulation [Recovered/Resolved with Sequelae]
  - Mesenteric vein thrombosis [Recovering/Resolving]
  - Noninfective oophoritis [Recovered/Resolved with Sequelae]
  - Systemic inflammatory response syndrome [None]
  - Peritonitis [Recovered/Resolved with Sequelae]
  - Uterine inflammation [Recovered/Resolved with Sequelae]
  - Compartment syndrome [None]
  - Pelvic abscess [Recovered/Resolved with Sequelae]
  - Septic shock [Recovered/Resolved with Sequelae]
  - Acute abdomen [Recovered/Resolved with Sequelae]
  - Renal failure [Recovered/Resolved with Sequelae]
  - Hepatic failure [Recovered/Resolved with Sequelae]

NARRATIVE: CASE EVENT DATE: 20141130
